FAERS Safety Report 10917253 (Version 2)
Quarter: 2015Q2

REPORT INFORMATION
  Report Type: Spontaneous
  Country: US (occurrence: US)
  Receive Date: 20150316
  Receipt Date: 20150524
  Transmission Date: 20150821
  Serious: No
  Sender: FDA-Public Use
  Company Number: US-JNJFOC-20141101385

PATIENT
  Age: 71 Year

DRUGS (1)
  1. ZYTIGA [Suspect]
     Active Substance: ABIRATERONE ACETATE
     Indication: PRODUCT USED FOR UNKNOWN INDICATION
     Route: 048
     Dates: start: 201401

REACTIONS (7)
  - Sinus disorder [Not Recovered/Not Resolved]
  - Lethargy [Unknown]
  - Malaise [Unknown]
  - Quality of life decreased [Unknown]
  - Feeling abnormal [Not Recovered/Not Resolved]
  - Somnolence [Not Recovered/Not Resolved]
  - Migraine [Not Recovered/Not Resolved]
